APPROVED DRUG PRODUCT: BETAPAR
Active Ingredient: MEPREDNISONE
Strength: 4MG
Dosage Form/Route: TABLET;ORAL
Application: N016053 | Product #002
Applicant: SCHERING CORP SUB SCHERING PLOUGH CORP
Approved: Approved Prior to Jan 1, 1982 | RLD: No | RS: No | Type: DISCN